FAERS Safety Report 6161205-5 (Version None)
Quarter: 2009Q2

REPORT INFORMATION
  Report Type: 
  Country: None (occurrence: None)
  Receive Date: 20090421
  Receipt Date: 20090410
  Transmission Date: 20091009
  Serious: Yes (Hospitalization)
  Sender: FDA-Public Use
  Company Number: US-JNJFOC-20090402987

PATIENT
  Sex: Male
  Weight: 68.04 kg

DRUGS (3)
  1. REMICADE [Suspect]
     Route: 042
  2. REMICADE [Suspect]
     Indication: COLITIS ULCERATIVE
     Dosage: TAKING INFLIXIMAB FOR 3 YEARS
     Route: 042
  3. SOLU-MEDROL [Concomitant]
     Route: 042

REACTIONS (2)
  - COLECTOMY [None]
  - DRUG TOLERANCE INCREASED [None]
